FAERS Safety Report 12969863 (Version 2)
Quarter: 2016Q4

REPORT INFORMATION
  Report Type: Spontaneous
  Country: JP (occurrence: JP)
  Receive Date: 20161123
  Receipt Date: 20161205
  Transmission Date: 20170207
  Serious: Yes (Hospitalization, Other)
  Sender: FDA-Public Use
  Company Number: JP-JNJFOC-20161120960

PATIENT
  Age: 84 Year

DRUGS (2)
  1. DICLOFENAC SODIUM. [Suspect]
     Active Substance: DICLOFENAC SODIUM
     Indication: SPINAL COLUMN STENOSIS
     Route: 048
     Dates: start: 20161019, end: 20161106
  2. TRAMCET [Suspect]
     Active Substance: ACETAMINOPHEN\TRAMADOL
     Indication: PAIN
     Route: 048
     Dates: start: 20161019

REACTIONS (2)
  - Renal impairment [Recovered/Resolved]
  - Hospitalisation [Unknown]

NARRATIVE: CASE EVENT DATE: 2016
